FAERS Safety Report 7319471-6 (Version None)
Quarter: 2011Q1

REPORT INFORMATION
  Report Type: 
  Country: None (occurrence: None)
  Receive Date: 20110228
  Receipt Date: 20100407
  Transmission Date: 20110831
  Serious: No
  Sender: FDA-Public Use
  Company Number: A0853919A

PATIENT
  Age: 61 Year
  Sex: Female

DRUGS (8)
  1. RISPERDAL [Concomitant]
  2. LORTAB [Concomitant]
  3. DITROPAN XL [Concomitant]
  4. LAMICTAL [Suspect]
     Indication: BIPOLAR DISORDER
     Dosage: 25MG ALTERNATE DAYS
     Route: 048
     Dates: start: 20100402
  5. DEPAKOTE [Concomitant]
  6. ARIMIDEX [Concomitant]
  7. NYQUIL [Concomitant]
  8. XANAX [Concomitant]

REACTIONS (1)
  - EXCORIATION [None]
